FAERS Safety Report 12435765 (Version 1)
Quarter: 2016Q2

REPORT INFORMATION
  Report Type: Report from Study
  Country: US (occurrence: US)
  Receive Date: 20160603
  Receipt Date: 20160603
  Transmission Date: 20160815
  Serious: Yes (Death)
  Sender: FDA-Public Use
  Company Number: US-ACTELION-A-NJ2016-137132

PATIENT
  Age: 61 Year
  Sex: Female

DRUGS (3)
  1. ALPRAZOLAM. [Concomitant]
     Active Substance: ALPRAZOLAM
     Dosage: UNK
     Dates: start: 20150528, end: 20160516
  2. FLUOXETINE [Concomitant]
     Active Substance: FLUOXETINE HYDROCHLORIDE
     Dosage: UNK
     Route: 048
  3. TRACLEER [Suspect]
     Active Substance: BOSENTAN
     Indication: PULMONARY ARTERIAL HYPERTENSION
     Dosage: 125 MG, BID
     Route: 048
     Dates: start: 20151230, end: 20160516

REACTIONS (1)
  - Death [Fatal]

NARRATIVE: CASE EVENT DATE: 20160516
